FAERS Safety Report 9002174 (Version 2)
Quarter: 2013Q1

REPORT INFORMATION
  Report Type: Spontaneous
  Country: US (occurrence: US)
  Receive Date: 20130107
  Receipt Date: 20130122
  Transmission Date: 20140127
  Serious: No
  Sender: FDA-Public Use
  Company Number: US-009507513-1301USA001939

PATIENT
  Age: 23 Year
  Sex: Female

DRUGS (1)
  1. IMPLANON [Suspect]
     Dosage: EVERY 3 YEARS
     Route: 059
     Dates: start: 20120917

REACTIONS (3)
  - Amenorrhoea [Unknown]
  - Menorrhagia [Recovered/Resolved]
  - Galactorrhoea [Unknown]
